FAERS Safety Report 21979239 (Version 1)
Quarter: 2023Q1

REPORT INFORMATION
  Report Type: Spontaneous
  Country: US (occurrence: None)
  Receive Date: 20230209
  Receipt Date: 20230209
  Transmission Date: 20230417
  Serious: No
  Sender: FDA-Public Use
  Company Number: None

PATIENT
  Age: 54 Year
  Sex: Male
  Weight: 76.5 kg

DRUGS (4)
  1. TADALAFIL [Suspect]
     Active Substance: TADALAFIL
     Indication: Erectile dysfunction
     Dosage: 1 TABLET AS NEEDED ORAL?
     Route: 048
     Dates: start: 20230203, end: 20230204
  2. VITAMIN C [Concomitant]
     Active Substance: ASCORBIC ACID
  3. vita d [Concomitant]
  4. circumin [Concomitant]

REACTIONS (4)
  - Pain in extremity [None]
  - Pain in extremity [None]
  - Arthralgia [None]
  - Arthralgia [None]

NARRATIVE: CASE EVENT DATE: 20230204
